FAERS Safety Report 5253920-2 (Version None)
Quarter: 2007Q1

REPORT INFORMATION
  Report Type: 
  Country: None (occurrence: None)
  Receive Date: 20070228
  Receipt Date: 20070228
  Transmission Date: 20070707
  Serious: No
  Sender: FDA-Public Use
  Company Number: None

PATIENT
  Age: 57 Year
  Sex: Male
  Weight: 63.5036 kg

DRUGS (2)
  1. RISPERDAL [Suspect]
     Dosage: ? 1/2 MG -} 1  ONE/DAY
  2. ATENOLOL [Suspect]
     Dosage: ? ONE/DAY

REACTIONS (14)
  - ANGER [None]
  - DEPRESSED MOOD [None]
  - DIABETES MELLITUS [None]
  - EMOTIONAL DISORDER [None]
  - EXTRASYSTOLES [None]
  - FEELING ABNORMAL [None]
  - FEELING GUILTY [None]
  - HALLUCINATION, AUDITORY [None]
  - HEMIPARESIS [None]
  - HYPOAESTHESIA FACIAL [None]
  - MICTURITION URGENCY [None]
  - SUICIDAL IDEATION [None]
  - THIRST [None]
  - TREMOR [None]
